FAERS Safety Report 4950013-6 (Version None)
Quarter: 2006Q1

REPORT INFORMATION
  Report Type: 
  Country: None (occurrence: None)
  Receive Date: 20060315
  Receipt Date: 20060223
  Transmission Date: 20060701
  Serious: Yes (Life-Threatening, Other)
  Sender: FDA-Public Use
  Company Number: GB200602000119

PATIENT
  Age: 28 Year
  Sex: Male
  Weight: 96 kg

DRUGS (2)
  1. HUMULIN N [Suspect]
     Indication: DIABETES MELLITUS
     Dosage: SUBCUTANEOUS
     Route: 058
     Dates: start: 20060112
  2. TIMODINE  R + C  (BENZALKONIUM CHLORIDE, DIMETICONE, HYDROCORTISONE, N [Concomitant]

REACTIONS (5)
  - HYPOGLYCAEMIA [None]
  - HYPOGLYCAEMIA UNAWARENESS [None]
  - LOSS OF CONSCIOUSNESS [None]
  - ROAD TRAFFIC ACCIDENT [None]
  - SENSORY LOSS [None]
